FAERS Safety Report 19654286 (Version 1)
Quarter: 2021Q3

REPORT INFORMATION
  Report Type: Spontaneous
  Country: GB (occurrence: GB)
  Receive Date: 20210803
  Receipt Date: 20210803
  Transmission Date: 20211014
  Serious: Yes (Hospitalization, Other)
  Sender: FDA-Public Use
  Company Number: NVSC2021GB168148

PATIENT
  Age: 33 Year
  Sex: Female

DRUGS (2)
  1. ADALIMUMAB [Suspect]
     Active Substance: ADALIMUMAB
     Indication: PSORIATIC ARTHROPATHY
     Dosage: 40 MG, BIW (FORTNIGHTLY)
     Route: 058
     Dates: start: 20210428
  2. METHOTREXATE. [Suspect]
     Active Substance: METHOTREXATE
     Indication: PRODUCT USED FOR UNKNOWN INDICATION
     Dosage: UNKNOWN
     Route: 065

REACTIONS (8)
  - Swelling face [Unknown]
  - Brain oedema [Unknown]
  - Pain in jaw [Unknown]
  - Ill-defined disorder [Unknown]
  - Arthralgia [Unknown]
  - Eye swelling [Unknown]
  - Hemiparesis [Unknown]
  - Headache [Unknown]
